FAERS Safety Report 8115360-8 (Version None)
Quarter: 2012Q1

REPORT INFORMATION
  Report Type: 
  Country: None (occurrence: None)
  Receive Date: 20120206
  Receipt Date: 20120206
  Transmission Date: 20120608
  Serious: Yes (Hospitalization)
  Sender: FDA-Public Use
  Company Number: None

PATIENT
  Sex: Male
  Weight: 99.79 kg

DRUGS (1)
  1. CIPROFLOXACIN [Suspect]
     Indication: SINUSITIS
     Dates: start: 20111115, end: 20111122

REACTIONS (10)
  - PANIC ATTACK [None]
  - MUSCULAR WEAKNESS [None]
  - BLINDNESS TRANSIENT [None]
  - DYSPNOEA [None]
  - DIZZINESS [None]
  - ANAPHYLACTIC REACTION [None]
  - BLINDNESS UNILATERAL [None]
  - VOMITING [None]
  - TREMOR [None]
  - RASH [None]
